FAERS Safety Report 13566013 (Version 2)
Quarter: 2017Q2

REPORT INFORMATION
  Report Type: Spontaneous
  Country: US (occurrence: US)
  Receive Date: 20170520
  Receipt Date: 20170615
  Transmission Date: 20170830
  Serious: No
  Sender: FDA-Public Use
  Company Number: US-TEVA-769980ACC

PATIENT
  Age: 66 Year
  Sex: Male

DRUGS (3)
  1. COPAXONE [Suspect]
     Active Substance: GLATIRAMER ACETATE
     Indication: MULTIPLE SCLEROSIS
     Dosage: PFS
     Route: 058
     Dates: start: 20160608
  2. ZETIA [Concomitant]
     Active Substance: EZETIMIBE
  3. GABAPENTIN. [Concomitant]
     Active Substance: GABAPENTIN

REACTIONS (3)
  - Motor dysfunction [Unknown]
  - Fall [Unknown]
  - Dysuria [Unknown]

NARRATIVE: CASE EVENT DATE: 201704
